FAERS Safety Report 9344619 (Version 1)
Quarter: 2013Q2

REPORT INFORMATION
  Report Type: Spontaneous
  Country: NL (occurrence: NL)
  Receive Date: 20130612
  Receipt Date: 20130612
  Transmission Date: 20140414
  Serious: Yes (Death, Other)
  Sender: FDA-Public Use
  Company Number: PHHY2013NL059136

PATIENT
  Age: 43 Year
  Sex: Male

DRUGS (3)
  1. CEFTAZIDIME [Suspect]
     Indication: FEBRILE NEUTROPENIA
  2. VANCOMYCIN [Suspect]
     Indication: FEBRILE NEUTROPENIA
  3. CYTARABINE [Concomitant]

REACTIONS (2)
  - Fusarium infection [Fatal]
  - Febrile neutropenia [Unknown]
